FAERS Safety Report 7823784-9 (Version None)
Quarter: 2011Q4

REPORT INFORMATION
  Report Type: 
  Country: None (occurrence: None)
  Receive Date: 20111019
  Receipt Date: 20111013
  Transmission Date: 20120403
  Serious: No
  Sender: FDA-Public Use
  Company Number: US-PFIZER INC-2011246973

PATIENT
  Sex: Female
  Weight: 58.05 kg

DRUGS (3)
  1. SYNTHROID [Concomitant]
     Indication: BASEDOW'S DISEASE
     Dosage: 50 MG, DAILY
  2. ZYVOX [Suspect]
     Indication: STAPHYLOCOCCAL INFECTION
     Dosage: 600 MG, 2X/DAY
     Dates: start: 20111012, end: 20111013
  3. SYNTHROID [Concomitant]
     Indication: AUTOIMMUNE THYROIDITIS

REACTIONS (1)
  - NAUSEA [None]
